FAERS Safety Report 25892457 (Version 1)
Quarter: 2025Q4

REPORT INFORMATION
  Report Type: Spontaneous
  Country: US (occurrence: None)
  Receive Date: 20251007
  Receipt Date: 20251007
  Transmission Date: 20260117
  Serious: Yes (Hospitalization)
  Sender: FDA-CTU
  Company Number: None

PATIENT
  Age: 62 Year
  Sex: Female

DRUGS (2)
  1. EPOPROSTENOL [Suspect]
     Active Substance: EPOPROSTENOL
     Indication: Pulmonary arterial hypertension
     Dosage: OTHER FREQUENCY : CONTINUOUSLY;?
     Route: 042
     Dates: start: 20250218
  2. SODIUM CHLOR SDV (50ML/FTV) [Concomitant]

REACTIONS (2)
  - Dyspnoea [None]
  - Oedema peripheral [None]

NARRATIVE: CASE EVENT DATE: 20250704
